FAERS Safety Report 9600460 (Version 3)
Quarter: 2014Q4

REPORT INFORMATION
  Report Type: Report from Study
  Country: US (occurrence: US)
  Receive Date: 20131004
  Receipt Date: 20141027
  Transmission Date: 20150529
  Serious: No
  Sender: FDA-Public Use
  Company Number: US-AMGEN-USASP2013035537

PATIENT
  Age: 61 Year
  Sex: Female

DRUGS (1)
  1. ENBREL [Suspect]
     Active Substance: ETANERCEPT
     Indication: ANKYLOSING SPONDYLITIS
     Dosage: 50 MG, QWK
     Route: 065
     Dates: start: 20130221

REACTIONS (7)
  - Feeling cold [Not Recovered/Not Resolved]
  - Injection site pain [Not Recovered/Not Resolved]
  - Chills [Not Recovered/Not Resolved]
  - Nausea [Recovered/Resolved]
  - Influenza [Recovered/Resolved]
  - Fatigue [Recovered/Resolved]
  - Body temperature decreased [Not Recovered/Not Resolved]

NARRATIVE: CASE EVENT DATE: 20130221
